FAERS Safety Report 16013194 (Version 1)
Quarter: 2019Q1

REPORT INFORMATION
  Report Type: Spontaneous
  Country: US (occurrence: US)
  Receive Date: 20190227
  Receipt Date: 20190227
  Transmission Date: 20190418
  Serious: Yes (Other)
  Sender: FDA-Public Use
  Company Number: None

PATIENT
  Age: 35 Year
  Sex: Female
  Weight: 70.65 kg

DRUGS (13)
  1. MAGNESIUM [Concomitant]
     Active Substance: MAGNESIUM
  2. SYNTHROID [Concomitant]
     Active Substance: LEVOTHYROXINE SODIUM
  3. D.H.E. 45 [Concomitant]
     Active Substance: DIHYDROERGOTAMINE MESYLATE
  4. ROBAXIN [Concomitant]
     Active Substance: METHOCARBAMOL
  5. LORATIDINE [Concomitant]
     Active Substance: LORATADINE
  6. HYDROCODONE [Concomitant]
     Active Substance: HYDROCODONE
  7. VITAMIN D3 [Concomitant]
     Active Substance: CHOLECALCIFEROL
  8. AIMOVIG [Suspect]
     Active Substance: ERENUMAB-AOOE
     Indication: MIGRAINE
     Dosage: ?          QUANTITY:2 INJECTION(S);OTHER FREQUENCY:USE BOTH 1X/MONTH;?
     Route: 058
     Dates: start: 20190205, end: 20190227
  9. TORADOL [Concomitant]
     Active Substance: KETOROLAC TROMETHAMINE
  10. REGLAN [Concomitant]
     Active Substance: METOCLOPRAMIDE HYDROCHLORIDE
  11. VITAMIN C [Concomitant]
     Active Substance: ASCORBIC ACID
  12. VITAMIN B12 [Concomitant]
     Active Substance: CYANOCOBALAMIN
  13. IRON [Concomitant]
     Active Substance: IRON

REACTIONS (5)
  - Therapy change [None]
  - Fatigue [None]
  - Nausea [None]
  - Blood pressure increased [None]
  - Vertigo [None]

NARRATIVE: CASE EVENT DATE: 20190206
